FAERS Safety Report 8339954-X (Version None)
Quarter: 2012Q2

REPORT INFORMATION
  Report Type: 
  Country: None (occurrence: None)
  Receive Date: 20120507
  Receipt Date: 20120503
  Transmission Date: 20120825
  Serious: Yes (Death)
  Sender: FDA-Public Use
  Company Number: US-PFIZER INC-2012109035

PATIENT

DRUGS (5)
  1. PROTONIX [Suspect]
     Dosage: UNK
  2. VISTARIL [Suspect]
     Dosage: UNK
  3. NEURONTIN [Suspect]
     Dosage: UNK
  4. CHANTIX [Suspect]
     Dosage: UNK
  5. LIPITOR [Suspect]
     Dosage: UNK

REACTIONS (1)
  - DEATH [None]
